FAERS Safety Report 17866098 (Version 1)
Quarter: 2020Q2

REPORT INFORMATION
  Report Type: Spontaneous
  Country: US (occurrence: US)
  Receive Date: 20200605
  Receipt Date: 20200605
  Transmission Date: 20200714
  Serious: Yes (Hospitalization)
  Sender: FDA-Public Use
  Company Number: None

PATIENT
  Age: 67 Year
  Sex: Male
  Weight: 80 kg

DRUGS (3)
  1. CRESTOR [Concomitant]
     Active Substance: ROSUVASTATIN CALCIUM
     Dates: start: 20200507, end: 20200523
  2. REMDESIVIR. [Suspect]
     Active Substance: REMDESIVIR
     Indication: COVID-19
     Dates: start: 20200511, end: 20200515
  3. APIXABAN [Concomitant]
     Active Substance: APIXABAN
     Dates: start: 20200518, end: 20200525

REACTIONS (6)
  - Liver function test increased [None]
  - Hepatitis [None]
  - International normalised ratio increased [None]
  - Rhabdomyolysis [None]
  - Ischaemic hepatitis [None]
  - Blood creatine phosphokinase increased [None]

NARRATIVE: CASE EVENT DATE: 20200524
